FAERS Safety Report 16995638 (Version 1)
Quarter: 2019Q4

REPORT INFORMATION
  Report Type: Spontaneous
  Country: IN (occurrence: IN)
  Receive Date: 20191105
  Receipt Date: 20191105
  Transmission Date: 20200122
  Serious: Yes (Other)
  Sender: FDA-Public Use
  Company Number: IN-ABBVIE-19K-078-2987638-00

PATIENT
  Age: 15 Month
  Sex: Female

DRUGS (1)
  1. SODIUM VALPROATE [Suspect]
     Active Substance: VALPROATE SODIUM
     Indication: PARTIAL SEIZURES
     Route: 065

REACTIONS (1)
  - Drug resistance [Unknown]
